FAERS Safety Report 23411442 (Version 4)
Quarter: 2024Q2

REPORT INFORMATION
  Report Type: Report from Study
  Country: US (occurrence: US)
  Receive Date: 20240117
  Receipt Date: 20240626
  Transmission Date: 20240716
  Serious: Yes (Other)
  Sender: FDA-Public Use
  Company Number: US-MYLANLABS-2024M1005263

PATIENT
  Sex: Female
  Weight: 69.4 kg

DRUGS (3)
  1. GLATIRAMER ACETATE [Suspect]
     Active Substance: GLATIRAMER ACETATE
     Indication: Multiple sclerosis
     Dosage: 40 MILLIGRAM, 3XW
     Route: 058
  2. GLATIRAMER ACETATE [Suspect]
     Active Substance: GLATIRAMER ACETATE
     Dosage: 40 MILLIGRAM, 3XW
     Route: 058
  3. METAMUCIL [Concomitant]
     Active Substance: PLANTAGO SEED
     Dosage: ONCE AND SOMETIMES TWICE A DAY
     Route: 065

REACTIONS (16)
  - Mental impairment [Unknown]
  - Confusional state [Unknown]
  - Faeces pale [Unknown]
  - Injection site warmth [Unknown]
  - Bowel movement irregularity [Unknown]
  - Injection site discolouration [Unknown]
  - Injection site erythema [Unknown]
  - Injection site rash [Unknown]
  - Urticaria [Unknown]
  - Injection site pruritus [Unknown]
  - Back pain [Unknown]
  - Flushing [Recovered/Resolved]
  - Erythema [Recovered/Resolved]
  - Injection site bruising [Recovered/Resolved]
  - Injection site mass [Recovered/Resolved]
  - Inappropriate schedule of product administration [Unknown]
